FAERS Safety Report 11938573 (Version 1)
Quarter: 2016Q1

REPORT INFORMATION
  Report Type: Spontaneous
  Country: JP (occurrence: JP)
  Receive Date: 20160122
  Receipt Date: 20160122
  Transmission Date: 20160526
  Serious: Yes (Other)
  Sender: FDA-Public Use
  Company Number: JP-GLAXOSMITHKLINE-JP2016JPN007079

PATIENT
  Age: 64 Year
  Sex: Female

DRUGS (2)
  1. UNKNOWNDRUG [Concomitant]
     Active Substance: UNSPECIFIED INGREDIENT
  2. ZEFIX [Suspect]
     Active Substance: LAMIVUDINE
     Route: 048

REACTIONS (1)
  - Hepatitis B [Unknown]
